FAERS Safety Report 13319067 (Version 1)
Quarter: 2017Q1

REPORT INFORMATION
  Report Type: Report from Study
  Country: ZA (occurrence: None)
  Receive Date: 20170309
  Receipt Date: 20170309
  Transmission Date: 20170428
  Serious: Yes (Hospitalization)
  Sender: FDA-Public Use
  Company Number: ZA-ABS-17128

PATIENT
  Age: 73 Year
  Sex: Male

DRUGS (15)
  1. ENTERO PROBIOTIC [Concomitant]
  2. VITAMINES B1 + B6 + B12 (NEUROBION?) [Concomitant]
  3. ZOVIRAX (ACYCLOVIR?) [Concomitant]
  4. OMEGA 3 [Concomitant]
     Active Substance: OMEGA-3 FATTY ACIDS
  5. FOLIC ACID. [Concomitant]
     Active Substance: FOLIC ACID
  6. DORZOLAMIDE/TIMOLOL (COSOPT?) [Concomitant]
  7. AMOXICILLIN (BETACLAV?) [Concomitant]
  8. MEMANTINE. [Concomitant]
     Active Substance: MEMANTINE
  9. ASPIRIN (ECOTRIN?) [Concomitant]
  10. MUPIROCIN (SUPIROBAN?) [Concomitant]
  11. MASITINIB [Suspect]
     Active Substance: MASITINIB
     Indication: DEMENTIA ALZHEIMER^S TYPE
     Dosage: 300 MG AND THEN 200MG PER OS
     Dates: start: 20161124, end: 20161220
  12. BISOPROLO (BILOCOR?) [Concomitant]
  13. DICLOFENAC (CATAFLAN?) [Concomitant]
  14. VALSARTAN (MIGROBEN?) [Concomitant]
  15. ACETAMINOPHEN (PANADO?) [Concomitant]

REACTIONS (8)
  - Disease progression [None]
  - Drug dose omission [None]
  - Encephalopathy [None]
  - Blood triglycerides increased [None]
  - Blood glucose increased [None]
  - Dermatitis [None]
  - Gamma-glutamyltransferase increased [None]
  - Dementia Alzheimer^s type [None]

NARRATIVE: CASE EVENT DATE: 20170217
